FAERS Safety Report 7913176-6 (Version None)
Quarter: 2011Q4

REPORT INFORMATION
  Report Type: 
  Country: None (occurrence: None)
  Receive Date: 20111114
  Receipt Date: 20111108
  Transmission Date: 20120403
  Serious: Yes (Other)
  Sender: FDA-Public Use
  Company Number: US-PFIZER INC-2011274013

PATIENT
  Sex: Female
  Weight: 58.957 kg

DRUGS (2)
  1. CYMBALTA [Concomitant]
     Indication: FIBROMYALGIA
     Dosage: 30 MG,DAILY
     Dates: start: 20110701
  2. GABAPENTIN [Suspect]
     Indication: COMPLEX REGIONAL PAIN SYNDROME
     Dosage: 300 MG, DAILY AT NIGHT
     Dates: start: 20110801

REACTIONS (3)
  - ABASIA [None]
  - MUSCULOSKELETAL STIFFNESS [None]
  - DRUG INEFFECTIVE [None]
